FAERS Safety Report 6841893-8 (Version None)
Quarter: 2010Q3

REPORT INFORMATION
  Report Type: 
  Country: None (occurrence: None)
  Receive Date: 20100714
  Receipt Date: 20070820
  Transmission Date: 20110219
  Serious: No
  Sender: FDA-Public Use
  Company Number: US-PFIZER INC-2007059313

PATIENT
  Sex: Male
  Weight: 95.5 kg

DRUGS (4)
  1. CHANTIX [Suspect]
     Indication: SMOKING CESSATION THERAPY
     Dates: start: 20070710
  2. XANAX [Concomitant]
  3. PROPACET 100 [Concomitant]
  4. PROTONIX [Concomitant]

REACTIONS (4)
  - ABDOMINAL PAIN [None]
  - BODY TEMPERATURE INCREASED [None]
  - DISCOMFORT [None]
  - FLATULENCE [None]
